FAERS Safety Report 14666766 (Version 1)
Quarter: 2018Q1

REPORT INFORMATION
  Report Type: Report from Study
  Country: DE (occurrence: DE)
  Receive Date: 20180322
  Receipt Date: 20180322
  Transmission Date: 20180509
  Serious: Yes (Hospitalization)
  Sender: FDA-Public Use
  Company Number: DE-ROCHE-1781891

PATIENT
  Age: 25 Year
  Sex: Female

DRUGS (14)
  1. MYFORTIC [Concomitant]
     Active Substance: MYCOPHENOLATE SODIUM
  2. AZITHROMYCIN ANHYDROUS. [Concomitant]
     Active Substance: AZITHROMYCIN ANHYDROUS
  3. ULTIBRO [Concomitant]
     Active Substance: GLYCOPYRRONIUM\INDACATEROL
  4. PIRFENIDONE. [Suspect]
     Active Substance: PIRFENIDONE
     Dosage: MAINTENANCE DOSE: TITRATION OF DRUG AS PER PROTOCOL UP TO 9 TABLETS PER DAY.
     Route: 048
     Dates: start: 20160510
  5. PREDNISOLONE. [Concomitant]
     Active Substance: PREDNISOLONE
  6. COTRIMOXAZOLE [Concomitant]
     Active Substance: SULFAMETHOXAZOLE\TRIMETHOPRIM
  7. PROGRAF [Concomitant]
     Active Substance: TACROLIMUS\TACROLIMUS ANHYDROUS
  8. PANKREATIN [Concomitant]
     Active Substance: PANCRELIPASE
  9. VITAMIN K [Concomitant]
     Active Substance: PHYTONADIONE
  10. SODIUM CHLORIDE. [Concomitant]
     Active Substance: SODIUM CHLORIDE
  11. VITAMINS A, D AND E [Concomitant]
  12. COLISTIN [Concomitant]
     Active Substance: COLISTIN
  13. PIRFENIDONE. [Suspect]
     Active Substance: PIRFENIDONE
     Indication: OBLITERATIVE BRONCHIOLITIS
     Dosage: 9 TABLETS PER DAY.
     Route: 048
     Dates: start: 20160510
  14. MONTELUKAST [Concomitant]
     Active Substance: MONTELUKAST SODIUM

REACTIONS (1)
  - Dyspnoea [Unknown]

NARRATIVE: CASE EVENT DATE: 20160602
